FAERS Safety Report 13672619 (Version 4)
Quarter: 2017Q3

REPORT INFORMATION
  Report Type: Report from Study
  Country: None (occurrence: RO)
  Receive Date: 20170621
  Receipt Date: 20170707
  Transmission Date: 20171127
  Serious: Yes (Death, Hospitalization, Other)
  Sender: FDA-Public Use
  Company Number: RO-ABBVIE-17K-135-2012658-00

PATIENT
  Age: 72 Year
  Sex: Male

DRUGS (1)
  1. DUODOPA [Suspect]
     Active Substance: CARBIDOPA\LEVODOPA
     Indication: PARKINSON^S DISEASE
     Dosage: 16H, MD 14/ CR 3.5 /ED 1
     Route: 050
     Dates: start: 20161213, end: 20170627

REACTIONS (8)
  - Klebsiella infection [Recovering/Resolving]
  - Gastroenteritis clostridial [Recovering/Resolving]
  - Haematemesis [Recovered/Resolved]
  - Platelet count decreased [Recovering/Resolving]
  - Hepatic failure [Fatal]
  - Cardio-respiratory arrest [Fatal]
  - International normalised ratio increased [Recovering/Resolving]
  - Hepatic failure [Recovering/Resolving]

NARRATIVE: CASE EVENT DATE: 20170524
